FAERS Safety Report 9034928 (Version 1)
Quarter: 2013Q1

REPORT INFORMATION
  Report Type: Spontaneous
  Country: JP (occurrence: None)
  Receive Date: 20130116
  Receipt Date: 20130116
  Transmission Date: 20140127
  Serious: Yes (Other)
  Sender: FDA-Public Use
  Company Number: 003525

PATIENT
  Age: 89 Year
  Sex: Female

DRUGS (3)
  1. PLETAAL [Suspect]
     Route: 048
     Dates: start: 19940531, end: 19940605
  2. DILTIAZEM HYDROCHLORIDE (DILTIAZEM HYDROCHLORIDE) [Concomitant]
  3. BIFEMELANE HYDROCHLORIDE (BEFEMELAND HYDROCHLORIDE) [Concomitant]

REACTIONS (4)
  - Renal failure acute [None]
  - Dyspnoea [None]
  - Oedema peripheral [None]
  - Pleural effusion [None]
